FAERS Safety Report 6817834-6 (Version None)
Quarter: 2010Q3

REPORT INFORMATION
  Report Type: 
  Country: None (occurrence: None)
  Receive Date: 20100706
  Receipt Date: 20100630
  Transmission Date: 20110219
  Serious: Yes (Hospitalization)
  Sender: FDA-Public Use
  Company Number: DE-MERCK-1005DEU00086

PATIENT
  Age: 71 Year
  Sex: Female
  Weight: 82 kg

DRUGS (18)
  1. SIMVASTATIN [Suspect]
     Route: 048
     Dates: end: 20070609
  2. PANTOPRAZOLE SODIUM [Suspect]
     Route: 048
     Dates: end: 20070609
  3. BETAHISTINE [Suspect]
     Route: 048
     Dates: end: 20070609
  4. ESTRADIOL VALERATE AND ESTRIOL AND LEVONORGESTREL [Suspect]
     Route: 048
     Dates: end: 20070606
  5. PHENPROCOUMON [Concomitant]
     Route: 048
     Dates: start: 20070613, end: 20070613
  6. PHENPROCOUMON [Concomitant]
     Route: 048
     Dates: start: 20070614, end: 20070616
  7. PHENPROCOUMON [Concomitant]
     Route: 048
     Dates: start: 20070617, end: 20070625
  8. PHENPROCOUMON [Concomitant]
     Route: 048
     Dates: start: 20070626
  9. ENOXAPARIN SODIUM [Concomitant]
     Route: 058
     Dates: start: 20070608, end: 20070622
  10. ASPIRIN AND DIPYRIDAMOLE [Concomitant]
     Route: 048
     Dates: end: 20070626
  11. TORSEMIDE [Concomitant]
     Route: 048
     Dates: start: 20070612, end: 20070625
  12. METOPROLOL TARTRATE [Concomitant]
     Route: 048
     Dates: start: 20070606, end: 20070626
  13. IRBESARTAN [Suspect]
     Route: 048
     Dates: end: 20070609
  14. LEVOTHYROXINE SODIUM [Concomitant]
     Route: 048
  15. DIMETHINDENE MALEATE [Concomitant]
     Route: 048
     Dates: start: 20070606, end: 20070614
  16. ARNICA [Concomitant]
     Route: 048
     Dates: start: 20070620, end: 20070625
  17. ARSENIC TRIIODIDE [Concomitant]
     Route: 058
     Dates: start: 20070620, end: 20070625
  18. CHAMOMILE [Concomitant]
     Route: 058
     Dates: start: 20070620, end: 20070625

REACTIONS (1)
  - HYPERSENSITIVITY [None]
